FAERS Safety Report 4343327-4 (Version None)
Quarter: 2004Q1

REPORT INFORMATION
  Report Type: 
  Country: None (occurrence: None)
  Receive Date: 20040325
  Receipt Date: 20040217
  Transmission Date: 20041129
  Serious: No
  Sender: FDA-Public Use
  Company Number: USA040157347

PATIENT
  Age: 63 Year
  Sex: Female
  Weight: 52 kg

DRUGS (8)
  1. FORTEO [Suspect]
     Indication: OSTEOPOROSIS
     Dates: start: 20030301
  2. EFFEXOR [Concomitant]
  3. FUROSEMIDE [Concomitant]
  4. METHOTREXATE [Concomitant]
  5. TYLENOL W/ CODEINE NO. 3 [Concomitant]
  6. BUSPAR [Concomitant]
  7. MOBIC [Concomitant]
  8. ACTONEL [Concomitant]

REACTIONS (6)
  - BONE DISORDER [None]
  - DIFFICULTY IN WALKING [None]
  - HERPES ZOSTER [None]
  - OEDEMA PERIPHERAL [None]
  - POST HERPETIC NEURALGIA [None]
  - WEIGHT DECREASED [None]
